FAERS Safety Report 5570596-5 (Version None)
Quarter: 2007Q4

REPORT INFORMATION
  Report Type: 
  Country: None (occurrence: None)
  Receive Date: 20071221
  Receipt Date: 20071210
  Transmission Date: 20080405
  Serious: Yes (Hospitalization, Disabling, Other)
  Sender: FDA-Public Use
  Company Number: FR-SANOFI-SYNTHELABO-F01200701693

PATIENT
  Age: 75 Year
  Sex: Male

DRUGS (2)
  1. ANDROCUR [Concomitant]
     Indication: PROSTATE CANCER
     Dosage: UNK
  2. ELIGARD [Suspect]
     Indication: PROSTATE CANCER
     Route: 058
     Dates: start: 20071101, end: 20071101

REACTIONS (7)
  - ARTHRALGIA [None]
  - ASTHENIA [None]
  - BACK PAIN [None]
  - DYSPNOEA [None]
  - HYPERTENSION [None]
  - PHLEBITIS [None]
  - PULMONARY EMBOLISM [None]
